FAERS Safety Report 15750109 (Version 2)
Quarter: 2019Q1

REPORT INFORMATION
  Report Type: Spontaneous
  Country: JP (occurrence: JP)
  Receive Date: 20181221
  Receipt Date: 20190117
  Transmission Date: 20190417
  Serious: Yes (Death, Other)
  Sender: FDA-Public Use
  Company Number: JP-NAPPMUNDI-GBR-2018-0062702

PATIENT
  Sex: Male

DRUGS (2)
  1. FENTANYL. [Concomitant]
     Active Substance: FENTANYL
     Indication: CANCER PAIN
     Dosage: 4 MG, DAILY
  2. OXINORM (OXYCODONE HYDROCHLORIDE) [Suspect]
     Active Substance: OXYCODONE HYDROCHLORIDE
     Indication: CANCER PAIN
     Dosage: 4-6 TIMES DAILY
     Route: 048

REACTIONS (4)
  - Constipation [Unknown]
  - Death [Fatal]
  - Therapeutic response decreased [Recovered/Resolved]
  - Dyspnoea at rest [Recovered/Resolved]
